FAERS Safety Report 24702488 (Version 2)
Quarter: 2024Q4

REPORT INFORMATION
  Report Type: Spontaneous
  Country: CA (occurrence: CA)
  Receive Date: 20241205
  Receipt Date: 20241216
  Transmission Date: 20250114
  Serious: Yes (Hospitalization, Other)
  Sender: JOHNSON AND JOHNSON
  Company Number: CA-JNJFOC-20241155898

PATIENT
  Age: 29 Year
  Sex: Male

DRUGS (16)
  1. INVEGA [Suspect]
     Active Substance: PALIPERIDONE
     Indication: Psychotic disorder
     Route: 048
  2. RISPERDAL [Suspect]
     Active Substance: RISPERIDONE
     Indication: Psychotic disorder
     Route: 048
  3. ARIPIPRAZOLE [Suspect]
     Active Substance: ARIPIPRAZOLE
     Indication: Psychotic disorder
     Route: 048
  4. CLOZAPINE [Suspect]
     Active Substance: CLOZAPINE
     Indication: Psychotic disorder
     Route: 065
  5. CLOZAPINE [Suspect]
     Active Substance: CLOZAPINE
  6. CLOZAPINE [Suspect]
     Active Substance: CLOZAPINE
     Route: 065
  7. LURASIDONE HYDROCHLORIDE [Suspect]
     Active Substance: LURASIDONE HYDROCHLORIDE
     Indication: Psychotic disorder
     Route: 065
  8. OLANZAPINE [Suspect]
     Active Substance: OLANZAPINE
     Indication: Psychotic disorder
     Route: 065
  9. PENTOXIFYLLINE [Suspect]
     Active Substance: PENTOXIFYLLINE
     Indication: Psychotic disorder
     Route: 065
  10. PENTOXIFYLLINE [Suspect]
     Active Substance: PENTOXIFYLLINE
     Indication: Thromboangiitis obliterans
     Route: 065
  11. PENTOXIFYLLINE [Suspect]
     Active Substance: PENTOXIFYLLINE
     Route: 065
  12. ZUCLOPENTHIXOL DECANOATE [Suspect]
     Active Substance: ZUCLOPENTHIXOL DECANOATE
     Indication: Psychotic disorder
     Route: 030
  13. CLOPIDOGREL [Concomitant]
     Active Substance: CLOPIDOGREL BISULFATE
     Indication: Psychotic disorder
  14. CLOPIDOGREL [Concomitant]
     Active Substance: CLOPIDOGREL BISULFATE
     Indication: Antiplatelet therapy
  15. OMEPRAZOLE [Concomitant]
     Active Substance: OMEPRAZOLE
     Indication: Psychotic disorder
  16. ROSUVASTATIN [Concomitant]
     Active Substance: ROSUVASTATIN
     Indication: Product used for unknown indication

REACTIONS (6)
  - Drug ineffective [Unknown]
  - Agitation [Unknown]
  - Akathisia [Unknown]
  - Arrhythmia [Unknown]
  - Intentional product misuse [Unknown]
  - Sedation [Unknown]
